FAERS Safety Report 5222500-7 (Version None)
Quarter: 2007Q1

REPORT INFORMATION
  Report Type: 
  Country: None (occurrence: None)
  Receive Date: 20070124
  Receipt Date: 20070111
  Transmission Date: 20070707
  Serious: Yes (Hospitalization)
  Sender: FDA-Public Use
  Company Number: 2006BI015218

PATIENT
  Age: 52 Year
  Sex: Male

DRUGS (12)
  1. AVONEX [Suspect]
     Indication: MULTIPLE SCLEROSIS
     Dosage: 30 UG; QW; IM
     Route: 030
     Dates: start: 20000101, end: 20030101
  2. AVONEX [Suspect]
     Indication: MULTIPLE SCLEROSIS
     Dosage: 30 UG; QW; IM
     Route: 030
     Dates: start: 20030101
  3. ANTIDEPRESSANT [Concomitant]
  4. CITALOPRAM HYDROBROMIDE [Concomitant]
  5. FUROSEMIDE [Concomitant]
  6. CARISOPRODOL [Concomitant]
  7. LASIX [Concomitant]
  8. VOLTAREN [Concomitant]
  9. SOMA [Concomitant]
  10. DICLOFENAC SODIUM [Concomitant]
  11. VIAGRA [Concomitant]
  12. ATIVAN [Concomitant]

REACTIONS (2)
  - HYPERTENSION [None]
  - INTERVERTEBRAL DISC DEGENERATION [None]
